FAERS Safety Report 25481157 (Version 1)
Quarter: 2025Q2

REPORT INFORMATION
  Report Type: Spontaneous
  Country: IT (occurrence: IT)
  Receive Date: 20250626
  Receipt Date: 20250626
  Transmission Date: 20250717
  Serious: Yes (Life-Threatening, Hospitalization, Other)
  Sender: ABBVIE
  Company Number: None

PATIENT
  Age: 50 Year
  Sex: Female

DRUGS (5)
  1. RINVOQ [Suspect]
     Active Substance: UPADACITINIB
     Indication: Crohn^s disease
     Dosage: SUBSEQUENTLY, FOR CLINICAL PRACTICE ??END DATE- 2025
     Route: 048
     Dates: start: 20250214
  2. RINVOQ [Suspect]
     Active Substance: UPADACITINIB
     Indication: Crohn^s disease
     Dosage: DOSE REDUCED?END DATE- 2025
     Route: 048
     Dates: start: 20250410
  3. RINVOQ [Suspect]
     Active Substance: UPADACITINIB
     Indication: Crohn^s disease
     Dosage: AS OF 03/06/25, RINVOQ HAS BEEN REDUCED TO 15 MG/DAY DUE TO POSSIBLE INTOLERANCE TO THE DRUG?DOSE...
     Route: 048
     Dates: start: 20250603, end: 20250605
  4. ESOMEPRAZOLE [Concomitant]
     Active Substance: ESOMEPRAZOLE
     Indication: Gastrooesophageal reflux disease
     Route: 048
  5. NEBIVOLOL HYDROCHLORIDE [Concomitant]
     Active Substance: NEBIVOLOL HYDROCHLORIDE
     Indication: Hypertension
     Route: 048

REACTIONS (2)
  - Acute kidney injury [Unknown]
  - Renal tubular necrosis [Unknown]

NARRATIVE: CASE EVENT DATE: 20250605
